FAERS Safety Report 11898281 (Version 5)
Quarter: 2019Q3

REPORT INFORMATION
  Report Type: Report from Study
  Country: JP (occurrence: JP)
  Receive Date: 20160108
  Receipt Date: 20190902
  Transmission Date: 20191004
  Serious: Yes (Other)
  Sender: FDA-Public Use
  Company Number: JP-ASTELLAS-2009JP004433

PATIENT
  Age: 42 Year
  Sex: Female
  Weight: 50 kg

DRUGS (65)
  1. LUNABELL [Concomitant]
     Active Substance: ETHINYL ESTRADIOL\NORETHINDRONE
     Route: 048
     Dates: start: 20100316, end: 20100610
  2. VITAMINS NOS [Concomitant]
     Active Substance: VITAMINS
     Indication: LUMBAR SPINAL STENOSIS
     Route: 065
     Dates: start: 20140613, end: 20140827
  3. PREDONINE [Suspect]
     Active Substance: PREDNISOLONE
     Dosage: 12.5-5 MG, EVERY OTHER DAY
     Route: 048
     Dates: start: 20080626, end: 20081023
  4. PREDONINE [Suspect]
     Active Substance: PREDNISOLONE
     Route: 048
     Dates: start: 20141023, end: 20150506
  5. PROVERA [Concomitant]
     Active Substance: MEDROXYPROGESTERONE ACETATE
     Route: 048
     Dates: start: 20140404, end: 20160117
  6. JUVELA [Concomitant]
     Active Substance: .ALPHA.-TOCOPHEROL\RETINOL
     Indication: CUTANEOUS SARCOIDOSIS
     Route: 048
     Dates: start: 20090312, end: 20090422
  7. PL [Concomitant]
     Active Substance: ACETAMINOPHEN\CAFFEINE\PROMETHAZINE\SALICYLAMIDE
     Indication: UPPER RESPIRATORY TRACT INFLAMMATION
     Route: 048
     Dates: start: 20141204, end: 20141211
  8. TACROLIMUS. [Suspect]
     Active Substance: TACROLIMUS
     Route: 048
     Dates: start: 20120419, end: 20130612
  9. TACROLIMUS. [Suspect]
     Active Substance: TACROLIMUS
     Route: 048
     Dates: start: 20130613, end: 20161025
  10. PREDONINE [Suspect]
     Active Substance: PREDNISOLONE
     Dosage: 5-20 MG, EVERY OTHER DAY
     Route: 048
     Dates: start: 20100225, end: 20100512
  11. PREDONINE [Suspect]
     Active Substance: PREDNISOLONE
     Dosage: 5-15 MG, EVERY OTHER DAY
     Route: 048
     Dates: start: 20100513, end: 20110309
  12. PREDONINE [Suspect]
     Active Substance: PREDNISOLONE
     Dosage: 5-7.5 MG, EVERY OTHER DAY
     Route: 048
     Dates: start: 20130613, end: 20131023
  13. PREDONINE [Suspect]
     Active Substance: PREDNISOLONE
     Route: 048
     Dates: start: 20180117
  14. TAKEPRON [Concomitant]
     Active Substance: LANSOPRAZOLE
     Indication: PRODUCT USED FOR UNKNOWN INDICATION
     Route: 048
     Dates: start: 20080501, end: 20080529
  15. PLANOVAR [Concomitant]
     Active Substance: ETHINYL ESTRADIOL\NORGESTREL
     Indication: PRODUCT USED FOR UNKNOWN INDICATION
     Route: 048
     Dates: start: 20080529, end: 20080607
  16. HIRUDOID                           /00723701/ [Concomitant]
     Active Substance: PENTOSAN POLYSULFATE SODIUM
     Indication: RASH
     Dosage: UNK UNK, UNKNOWN FREQ.
     Route: 061
     Dates: start: 20111222, end: 20120419
  17. JUVELA [Concomitant]
     Active Substance: .ALPHA.-TOCOPHEROL\RETINOL
     Indication: RASH
     Route: 048
     Dates: start: 20100107, end: 20100318
  18. ALESION [Concomitant]
     Active Substance: EPINASTINE HYDROCHLORIDE
     Indication: RHINITIS ALLERGIC
     Route: 048
     Dates: start: 20090312, end: 20090422
  19. PROSTANDIN [Concomitant]
     Indication: CUTANEOUS SARCOIDOSIS
     Dosage: UNK UNK, UNKNOWN FREQ.
     Route: 061
     Dates: start: 20090312, end: 20090422
  20. UREPEARL [Concomitant]
     Active Substance: UREA
     Indication: XERODERMA
     Dosage: UNK UNK, UNKNOWN FREQ.
     Route: 061
     Dates: start: 20121213, end: 20130411
  21. UREPEARL [Concomitant]
     Active Substance: UREA
     Indication: ASTEATOSIS
     Dosage: UNK UNK, UNKNOWN FREQ.
     Route: 061
     Dates: start: 20160121, end: 20160726
  22. TACROLIMUS. [Suspect]
     Active Substance: TACROLIMUS
     Indication: LUPUS NEPHRITIS
     Route: 048
     Dates: start: 20080403, end: 20120418
  23. PREDONINE [Suspect]
     Active Substance: PREDNISOLONE
     Route: 048
     Dates: start: 20131024, end: 20141022
  24. PREDONINE [Suspect]
     Active Substance: PREDNISOLONE
     Route: 048
     Dates: start: 20150507, end: 20160420
  25. GASTER [Concomitant]
     Active Substance: FAMOTIDINE
     Indication: ABDOMINAL PAIN UPPER
     Route: 048
     Dates: end: 20080501
  26. GASTER [Concomitant]
     Active Substance: FAMOTIDINE
     Route: 048
     Dates: start: 20080529, end: 20081218
  27. COMELIAN [Concomitant]
     Active Substance: DILAZEP
     Indication: LUPUS NEPHRITIS
     Route: 048
     Dates: end: 20081104
  28. COMELIAN [Concomitant]
     Active Substance: DILAZEP
     Route: 048
     Dates: start: 20081120, end: 20171025
  29. LUTORAL [Concomitant]
     Active Substance: CHLORMADINONE ACETATE
     Indication: PRODUCT USED FOR UNKNOWN INDICATION
     Route: 048
     Dates: start: 20080424, end: 20080503
  30. PLANOVAR [Concomitant]
     Active Substance: ETHINYL ESTRADIOL\NORGESTREL
     Route: 048
     Dates: start: 20080626, end: 20080726
  31. PROVERA [Concomitant]
     Active Substance: MEDROXYPROGESTERONE ACETATE
     Indication: PREMATURE MENOPAUSE
     Route: 048
     Dates: start: 20100610, end: 20120314
  32. HIRUDOID                           /00723701/ [Concomitant]
     Active Substance: PENTOSAN POLYSULFATE SODIUM
     Dosage: UNK UNK, UNKNOWN FREQ.
     Route: 061
     Dates: start: 20150205, end: 20150506
  33. LUNABELL [Concomitant]
     Active Substance: ETHINYL ESTRADIOL\NORETHINDRONE
     Indication: PRODUCT USED FOR UNKNOWN INDICATION
     Route: 048
     Dates: start: 20090701, end: 20100107
  34. ISODINE [Concomitant]
     Active Substance: POVIDONE-IODINE
     Indication: PROPHYLAXIS
     Dosage: UNK UNK, UNKNOWN FREQ.
     Route: 061
     Dates: start: 20100610
  35. ALFAROL [Concomitant]
     Active Substance: ALFACALCIDOL
     Indication: PROPHYLAXIS
     Dosage: 0.25 ?G, ONCE DAILY
     Route: 048
     Dates: start: 20101216, end: 20130410
  36. PREDONINE [Suspect]
     Active Substance: PREDNISOLONE
     Dosage: 5-12.5 MG, EVERY OTHER DAY
     Route: 048
     Dates: start: 20110310, end: 20110803
  37. PREDONINE [Suspect]
     Active Substance: PREDNISOLONE
     Dosage: 5-10 MG, EVERY OTHER DAY
     Route: 048
     Dates: start: 20110804, end: 20130612
  38. HIRUDOID                           /00723701/ [Concomitant]
     Active Substance: PENTOSAN POLYSULFATE SODIUM
     Indication: RASH
     Dosage: UNK UNK, UNKNOWN FREQ.
     Route: 061
     Dates: start: 20100218, end: 20110310
  39. HIRUDOID                           /00723701/ [Concomitant]
     Active Substance: PENTOSAN POLYSULFATE SODIUM
     Dosage: UNK UNK, UNKNOWN FREQ.
     Route: 061
     Dates: start: 20170427
  40. MUCOSOLVAN [Concomitant]
     Active Substance: AMBROXOL HYDROCHLORIDE
     Indication: RHINITIS ALLERGIC
     Route: 048
     Dates: start: 20070312, end: 20090422
  41. VOALLA [Concomitant]
     Indication: ECZEMA
     Dosage: UNK UNK, UNKNOWN FREQ.
     Route: 061
     Dates: start: 20121213, end: 20130411
  42. JULINA [Concomitant]
     Active Substance: ESTRADIOL
     Indication: PRODUCT USED FOR UNKNOWN INDICATION
     Dosage: 0.5 MG, ONCE DAILY
     Route: 048
     Dates: start: 20100610, end: 20120314
  43. UREPEARL [Concomitant]
     Active Substance: UREA
     Indication: RASH
     Dosage: UNK UNK, UNKNOWN FREQ.
     Route: 061
     Dates: start: 20110127, end: 20110310
  44. POPIYODON [Concomitant]
     Indication: PROPHYLAXIS
     Dosage: UNK UNK, UNKNOWN FREQ.
     Route: 061
     Dates: start: 20110310, end: 20140827
  45. EDIROL [Concomitant]
     Active Substance: ELDECALCITOL
     Indication: PROPHYLAXIS
     Dosage: 0.75 ?G, ONCE DAILY
     Route: 048
     Dates: start: 20130411, end: 20140618
  46. TACROLIMUS. [Suspect]
     Active Substance: TACROLIMUS
     Route: 048
     Dates: start: 20161026, end: 20170426
  47. PREDONINE [Suspect]
     Active Substance: PREDNISOLONE
     Dosage: 10-5 MG, EVERY OTHER DAY
     Route: 048
     Dates: start: 20081023, end: 20090902
  48. PREDONINE [Suspect]
     Active Substance: PREDNISOLONE
     Dosage: 5-7.5 MG, EVERY OTHER DAY
     Route: 048
     Dates: start: 20090902, end: 20100225
  49. PREMARIN [Concomitant]
     Active Substance: ESTROGENS, CONJUGATED
     Indication: PRODUCT USED FOR UNKNOWN INDICATION
     Route: 048
     Dates: start: 20080724, end: 20090701
  50. PROVERA [Concomitant]
     Active Substance: MEDROXYPROGESTERONE ACETATE
     Indication: PRODUCT USED FOR UNKNOWN INDICATION
     Route: 048
     Dates: start: 20080724, end: 20090701
  51. PROPADERM [Concomitant]
     Active Substance: BECLOMETHASONE DIPROPIONATE
     Indication: CUTANEOUS SARCOIDOSIS
     Dosage: UNK UNK, UNKNOWN FREQ.
     Route: 061
     Dates: start: 20090129, end: 20090312
  52. HIRUDOID                           /00723701/ [Concomitant]
     Active Substance: PENTOSAN POLYSULFATE SODIUM
     Indication: CHILLBLAINS
     Dosage: UNK UNK, UNKNOWN FREQ.
     Route: 061
     Dates: start: 20121213, end: 20130411
  53. PREDONINE [Suspect]
     Active Substance: PREDNISOLONE
     Indication: LUPUS NEPHRITIS
     Dosage: 15-5 MG, EVERY OTHER DAY
     Route: 048
     Dates: end: 20080626
  54. ENDOXAN [Suspect]
     Active Substance: CYCLOPHOSPHAMIDE
     Indication: PRODUCT USED FOR UNKNOWN INDICATION
     Dosage: UNK UNK, UNKNOWN FREQ.
     Route: 065
  55. FOSAMAC [Concomitant]
     Active Substance: ALENDRONATE SODIUM
     Indication: PRODUCT USED FOR UNKNOWN INDICATION
     Route: 048
     Dates: start: 20080724, end: 20081218
  56. HIRUDOID                           /00723701/ [Concomitant]
     Active Substance: PENTOSAN POLYSULFATE SODIUM
     Indication: CUTANEOUS SARCOIDOSIS
     Dosage: UNK UNK, UNKNOWN FREQ.
     Route: 061
     Dates: start: 20090129, end: 20090312
  57. HIRUDOID                           /00723701/ [Concomitant]
     Active Substance: PENTOSAN POLYSULFATE SODIUM
     Dosage: UNK UNK, UNKNOWN FREQ.
     Route: 061
     Dates: start: 20151029, end: 20160726
  58. FERROMIA [Concomitant]
     Active Substance: SODIUM FERROUS CITRATE
     Indication: IRON DEFICIENCY ANAEMIA
     Route: 048
     Dates: start: 20090701, end: 20091028
  59. VOALLA [Concomitant]
     Indication: RASH
     Dosage: UNK UNK, UNKNOWN FREQ.
     Route: 061
     Dates: start: 20100218, end: 20100318
  60. KINDAVATE [Concomitant]
     Active Substance: CLOBETASONE BUTYRATE
     Indication: ECZEMA
     Dosage: UNK UNK, UNKNOWN FREQ.
     Route: 061
     Dates: start: 20130613, end: 20131023
  61. DIVIGEL [Concomitant]
     Active Substance: ESTRADIOL
     Indication: PREMATURE MENOPAUSE
     Route: 048
     Dates: start: 20140404, end: 20160117
  62. TACROLIMUS. [Suspect]
     Active Substance: TACROLIMUS
     Route: 048
     Dates: start: 20170427
  63. PREDONINE [Suspect]
     Active Substance: PREDNISOLONE
     Route: 048
     Dates: start: 20160421, end: 20180116
  64. GASTER [Concomitant]
     Active Substance: FAMOTIDINE
     Route: 048
     Dates: start: 20091028, end: 20091126
  65. HIRUDOID                           /00723701/ [Concomitant]
     Active Substance: PENTOSAN POLYSULFATE SODIUM
     Indication: ASTEATOSIS
     Dosage: UNK UNK, UNKNOWN FREQ.
     Route: 061
     Dates: end: 20120621

REACTIONS (12)
  - Chillblains [Recovering/Resolving]
  - Upper respiratory tract infection [Recovering/Resolving]
  - Eczema [Recovered/Resolved]
  - Lumbar spinal stenosis [Recovering/Resolving]
  - Xeroderma [Recovered/Resolved]
  - Rash [Recovered/Resolved]
  - Eczema [Recovering/Resolving]
  - Iron deficiency anaemia [Recovered/Resolved]
  - Asteatosis [Recovering/Resolving]
  - Cutaneous sarcoidosis [Recovered/Resolved]
  - Abdominal pain upper [Recovered/Resolved]
  - Rhinitis allergic [Recovered/Resolved]

NARRATIVE: CASE EVENT DATE: 20090129
